FAERS Safety Report 5512227-6 (Version None)
Quarter: 2007Q4

REPORT INFORMATION
  Report Type: 
  Country: None (occurrence: None)
  Receive Date: 20071112
  Receipt Date: 20071105
  Transmission Date: 20080405
  Serious: Yes (Hospitalization)
  Sender: FDA-Public Use
  Company Number: PHBS2007SE18502

PATIENT
  Age: 60 Year
  Sex: Female

DRUGS (3)
  1. VOLTAREN [Suspect]
     Indication: ARTHRITIS
     Route: 065
  2. ORUDIS [Concomitant]
     Indication: ARTHRITIS
     Route: 065
  3. OMEPRAZOLE [Concomitant]
     Indication: DYSPEPSIA

REACTIONS (5)
  - FAECES DISCOLOURED [None]
  - FATIGUE [None]
  - GASTRIC ULCER [None]
  - HAEMOGLOBIN DECREASED [None]
  - HIATUS HERNIA [None]
